FAERS Safety Report 8810018 (Version 1)
Quarter: 2012Q4

REPORT INFORMATION
  Report Type: 
  Country: DE (occurrence: DE)
  Receive Date: 20120926
  Receipt Date: 20120926
  Transmission Date: 20130627
  Serious: Yes (Life-Threatening, Hospitalization)
  Sender: FDA-Public Use
  Company Number: DE-TEVA-359112GER

PATIENT
  Age: 85 Year
  Sex: Female
  Weight: 67 kg

DRUGS (17)
  1. METFORMIN [Suspect]
     Indication: TYPE 2 DIABETES MELLITUS
     Dosage: 1700 Milligram Daily;
     Route: 048
     Dates: start: 20120201
  2. METFORMIN [Suspect]
     Indication: TYPE 2 DIABETES MELLITUS
     Dosage: 500 Milligram Daily;
     Route: 048
     Dates: start: 20110111
  3. L-THYROXIN [Concomitant]
     Route: 048
  4. ALLOPURINOL [Concomitant]
     Route: 048
  5. DETRUSITOL 2 MG [Concomitant]
     Dosage: 4 Milligram Daily;
     Route: 048
  6. TEBONIN FORTE [Concomitant]
     Dosage: 80 Milligram Daily;
     Route: 048
  7. CAPTOPRIL 25MG [Concomitant]
     Dosage: 50 Milligram Daily;
     Route: 048
  8. STILNOX [Concomitant]
     Dosage: 1 Dosage forms Daily;
     Route: 048
  9. REMERON 30 MG FILMTABLETTEN [Concomitant]
     Dosage: 30 Milligram Daily;
     Route: 048
  10. TOREM 5 [Concomitant]
     Dosage: 5 Milligram Daily;
     Route: 048
  11. AQUAPHOR 10 [Concomitant]
     Dosage: 10 Milligram Daily;
     Route: 048
  12. AMLODIPINE [Concomitant]
     Dosage: 10 Milligram Daily;
     Route: 048
  13. ASS 100 [Concomitant]
     Dosage: 100 Milligram Daily;
     Route: 048
  14. PANTOZOL [Concomitant]
     Dosage: 40 Milligram Daily;
     Route: 048
  15. BELOC-ZOK MITE [Concomitant]
     Dosage: 1 Dosage forms Daily;
     Route: 048
  16. NACOM [Concomitant]
     Dosage: 2 Dosage forms Daily;
     Route: 048
  17. CEFUROXIM [Concomitant]
     Dosage: 1000 Milligram Daily;
     Route: 048
     Dates: start: 20111221

REACTIONS (4)
  - Lactic acidosis [Recovered/Resolved]
  - Renal failure acute [Recovered/Resolved]
  - Hyperkalaemia [Recovered/Resolved]
  - Atrioventricular block complete [Recovered/Resolved]
